FAERS Safety Report 5278039-6 (Version None)
Quarter: 2007Q1

REPORT INFORMATION
  Report Type: 
  Country: None (occurrence: None)
  Receive Date: 20070327
  Receipt Date: 20070319
  Transmission Date: 20070707
  Serious: Yes (Hospitalization, Other)
  Sender: FDA-Public Use
  Company Number: BR-ELI_LILLY_AND_COMPANY-BR200703004187

PATIENT
  Age: 67 Year
  Sex: Female

DRUGS (4)
  1. GEMZAR [Suspect]
     Indication: LUNG CANCER METASTATIC
     Dosage: UNK, UNKNOWN
     Route: 042
     Dates: start: 20050101, end: 20060101
  2. GEMZAR [Suspect]
     Dosage: UNK, UNKNOWN
     Route: 042
     Dates: start: 20070201
  3. DEXAMETHASONE [Concomitant]
     Indication: LUNG NEOPLASM MALIGNANT
     Dosage: UNK, UNKNOWN
     Route: 042
  4. NAUSEDRON [Concomitant]
     Indication: LUNG NEOPLASM MALIGNANT
     Dosage: UNK, UNKNOWN
     Route: 042

REACTIONS (6)
  - BONE CANCER METASTATIC [None]
  - BONE PAIN [None]
  - BRAIN CANCER METASTATIC [None]
  - PLATELET COUNT DECREASED [None]
  - PYREXIA [None]
  - WHITE BLOOD CELL COUNT DECREASED [None]
